FAERS Safety Report 13510337 (Version 2)
Quarter: 2017Q2

REPORT INFORMATION
  Report Type: Spontaneous
  Country: US (occurrence: US)
  Receive Date: 20170503
  Receipt Date: 20170530
  Transmission Date: 20170830
  Serious: Yes (Hospitalization, Other)
  Sender: FDA-Public Use
  Company Number: US-GILEAD-2017-0269992

PATIENT
  Age: 55 Year
  Sex: Male
  Weight: 84.81 kg

DRUGS (8)
  1. DYMISTA [Concomitant]
     Active Substance: AZELASTINE HYDROCHLORIDE\FLUTICASONE PROPIONATE
     Indication: HYPERSENSITIVITY
     Dosage: 1 DF, UNK
     Route: 048
  2. AMLODIPINE [Concomitant]
     Active Substance: AMLODIPINE BESYLATE
     Indication: HYPERTENSION
     Dosage: 5 MG, UNK
     Route: 048
  3. MOBIC [Concomitant]
     Active Substance: MELOXICAM
     Indication: ARTHRITIS
     Dosage: 15 MG, UNK
     Route: 048
  4. FLEXACIL [Concomitant]
     Indication: ARTHRITIS
     Dosage: 10 MG, UNK
     Route: 048
  5. LOSARTAN. [Concomitant]
     Active Substance: LOSARTAN
     Indication: HYPERTENSION
     Dosage: 25 MG, UNK
     Route: 048
  6. NORCO [Suspect]
     Active Substance: ACETAMINOPHEN\HYDROCODONE BITARTRATE
     Indication: PRODUCT USED FOR UNKNOWN INDICATION
     Route: 065
  7. OMEPRAZOLE. [Concomitant]
     Active Substance: OMEPRAZOLE
     Indication: GASTROOESOPHAGEAL REFLUX DISEASE
     Dosage: 10 MG, UNK
     Route: 048
  8. HARVONI [Suspect]
     Active Substance: LEDIPASVIR\SOFOSBUVIR
     Indication: HEPATITIS C
     Dosage: 90 MG, UNK
     Route: 048
     Dates: start: 20161227

REACTIONS (3)
  - Ascites [Recovered/Resolved]
  - Portal hypertension [Unknown]
  - Encephalopathy [Recovered/Resolved]

NARRATIVE: CASE EVENT DATE: 20170226
